FAERS Safety Report 6211962-4 (Version None)
Quarter: 2009Q2

REPORT INFORMATION
  Report Type: 
  Country: None (occurrence: None)
  Receive Date: 20090602
  Receipt Date: 20080930
  Transmission Date: 20091009
  Serious: No
  Sender: FDA-Public Use
  Company Number: US-TYCO HEALTHCARE/MALLINCKRODT-T200801600

PATIENT

DRUGS (3)
  1. TOFRANIL [Suspect]
     Indication: ABDOMINAL DISCOMFORT
     Dosage: 10 MG, QD
     Dates: start: 20020101
  2. LEVOTHROID [Concomitant]
     Indication: THYROIDECTOMY
     Dosage: UNK, QD
     Route: 048
     Dates: start: 19750101
  3. DICYCLOMINE [Concomitant]
     Indication: GASTRIC DISORDER
     Dosage: UNK, QD
     Route: 048

REACTIONS (6)
  - DRUG INEFFECTIVE [None]
  - DYSPNOEA [None]
  - FATIGUE [None]
  - HEADACHE [None]
  - OFF LABEL USE [None]
  - PIGMENTATION DISORDER [None]
